FAERS Safety Report 10501328 (Version 1)
Quarter: 2014Q4

REPORT INFORMATION
  Report Type: Spontaneous
  Country: US (occurrence: None)
  Receive Date: 20141006
  Receipt Date: 20141006
  Transmission Date: 20150528
  Serious: No
  Sender: FDA-Public Use
  Company Number: None

PATIENT
  Age: 38 Year
  Sex: Female
  Weight: 65.77 kg

DRUGS (1)
  1. CETIRIZINE HYDROCHLORIDE. [Suspect]
     Active Substance: CETIRIZINE HYDROCHLORIDE
     Indication: SEASONAL ALLERGY
     Dates: start: 20130501, end: 20141002

REACTIONS (6)
  - Scratch [None]
  - Product quality issue [None]
  - Pruritus [None]
  - Skin haemorrhage [None]
  - Withdrawal syndrome [None]
  - Urticaria [None]

NARRATIVE: CASE EVENT DATE: 20141004
